FAERS Safety Report 5995865-6 (Version None)
Quarter: 2008Q4

REPORT INFORMATION
  Report Type: 
  Country: None (occurrence: None)
  Receive Date: 20081212
  Receipt Date: 20081209
  Transmission Date: 20090506
  Serious: Yes (Death, Hospitalization)
  Sender: FDA-Public Use
  Company Number: GB-B.I. PHARMACEUTICALS,INC./RIDGEFIELD-2008-UK-01858UK

PATIENT
  Sex: Male

DRUGS (1)
  1. TIPRANAVIR+RITONAVIR CO-ADMIN (EU/1/05/315/001) [Suspect]
     Indication: HIV INFECTION

REACTIONS (2)
  - LIVER DISORDER [None]
  - VIRAL LOAD [None]
